FAERS Safety Report 12225145 (Version 2)
Quarter: 2016Q3

REPORT INFORMATION
  Report Type: Spontaneous
  Country: US (occurrence: US)
  Receive Date: 20160331
  Receipt Date: 20160819
  Transmission Date: 20161109
  Serious: No
  Sender: FDA-Public Use
  Company Number: US-ASTRAZENECA-2016SE20501

PATIENT
  Sex: Female
  Weight: 81.6 kg

DRUGS (18)
  1. CENTRUM SILVER [Concomitant]
     Active Substance: MINERALS\VITAMINS
     Indication: ILL-DEFINED DISORDER
     Dosage: 1 UNK, DAILY
     Route: 048
     Dates: start: 2008
  2. HYDROCORTISONE. [Concomitant]
     Active Substance: HYDROCORTISONE
     Indication: ADDISON^S DISEASE
     Route: 048
     Dates: start: 2010
  3. PREMPRO [Concomitant]
     Active Substance: ESTROGENS, CONJUGATED\MEDROXYPROGESTERONE ACETATE
     Indication: HORMONE REPLACEMENT THERAPY
     Dosage: 0.625 UNK, DAILY
     Route: 048
     Dates: start: 1986
  4. SPIRIVA [Concomitant]
     Active Substance: TIOTROPIUM BROMIDE MONOHYDRATE
     Indication: CHRONIC OBSTRUCTIVE PULMONARY DISEASE
     Route: 055
     Dates: start: 201510
  5. ASPIRIN. [Concomitant]
     Active Substance: ASPIRIN
     Indication: PAIN
     Dosage: 325.0MG AS REQUIRED
     Route: 048
     Dates: start: 2006
  6. ALBUTEROL SULFATE. [Concomitant]
     Active Substance: ALBUTEROL SULFATE
     Indication: CHRONIC OBSTRUCTIVE PULMONARY DISEASE
     Route: 055
     Dates: start: 1992
  7. SYMBICORT [Suspect]
     Active Substance: BUDESONIDE\FORMOTEROL FUMARATE DIHYDRATE
     Indication: CHRONIC OBSTRUCTIVE PULMONARY DISEASE
     Dosage: 160/4.5 MCG 120 INHALATIONS 2 PUFFS TWICE DAILY
     Route: 055
     Dates: start: 201410
  8. MITAZAPINE [Concomitant]
     Indication: POST-TRAUMATIC STRESS DISORDER
     Route: 048
     Dates: start: 2000
  9. HYDROCODONE [Concomitant]
     Active Substance: HYDROCODONE
     Indication: PAIN
     Route: 048
     Dates: start: 2004
  10. LEVOTHYROXINE. [Concomitant]
     Active Substance: LEVOTHYROXINE
     Indication: AUTOIMMUNE THYROIDITIS
     Route: 048
     Dates: start: 2004
  11. FISH OIL [Concomitant]
     Active Substance: FISH OIL
     Indication: BLOOD CHOLESTEROL ABNORMAL
     Route: 048
     Dates: start: 2004
  12. VENLAFAXINE [Concomitant]
     Active Substance: VENLAFAXINE HYDROCHLORIDE
     Indication: POST-TRAUMATIC STRESS DISORDER
     Route: 048
     Dates: start: 2010
  13. CLONAZAPAM [Concomitant]
     Active Substance: CLONAZEPAM
     Indication: PANIC ATTACK
     Route: 048
     Dates: start: 2010
  14. PREVENTIL [Concomitant]
     Indication: CHRONIC OBSTRUCTIVE PULMONARY DISEASE
     Dosage: 2 UNK, EVERY FOUR HOURS
     Route: 055
     Dates: start: 201510
  15. BYSTOLIC [Concomitant]
     Active Substance: NEBIVOLOL HYDROCHLORIDE
     Indication: HYPERTENSION
     Route: 048
     Dates: start: 2004
  16. VITAMIN K [Concomitant]
     Active Substance: PHYTONADIONE
     Indication: COAGULOPATHY
     Route: 048
     Dates: start: 2011
  17. VITAMIN D [Concomitant]
     Active Substance: CHOLECALCIFEROL
     Indication: NUTRITIONAL SUPPLEMENTATION
     Route: 048
     Dates: start: 2011
  18. DHEA [Concomitant]
     Active Substance: PRASTERONE
     Indication: HORMONE REPLACEMENT THERAPY
     Route: 048
     Dates: start: 2004

REACTIONS (1)
  - Injury associated with device [Unknown]
